FAERS Safety Report 24869208 (Version 1)
Quarter: 2025Q1

REPORT INFORMATION
  Report Type: Spontaneous
  Country: CN (occurrence: CN)
  Receive Date: 20250121
  Receipt Date: 20250121
  Transmission Date: 20250409
  Serious: Yes (Hospitalization, Other)
  Sender: OTSUKA
  Company Number: CN-OTSUKA-2025_001218

PATIENT
  Age: 17 Year
  Sex: Female
  Weight: 51.6 kg

DRUGS (5)
  1. BUSULFEX [Suspect]
     Active Substance: BUSULFAN
     Indication: Acute myeloid leukaemia
     Dosage: 41.280 MG, QID (MICRO-PUMP INJECTION)
     Route: 065
     Dates: start: 20241128, end: 20241201
  2. LAPINE T-LYMPHOCYTE IMMUNE GLOBULIN [Suspect]
     Active Substance: LAPINE T-LYMPHOCYTE IMMUNE GLOBULIN
     Indication: Acute myeloid leukaemia
     Dosage: 125 MG, QD
     Route: 042
     Dates: start: 20241130, end: 20241130
  3. LAPINE T-LYMPHOCYTE IMMUNE GLOBULIN [Suspect]
     Active Substance: LAPINE T-LYMPHOCYTE IMMUNE GLOBULIN
     Dosage: 133 MG, QD
     Route: 042
     Dates: start: 20241201, end: 20241201
  4. MELPHALAN HYDROCHLORIDE [Suspect]
     Active Substance: MELPHALAN HYDROCHLORIDE
     Indication: Acute myeloid leukaemia
     Dosage: 96 MG, QD
     Route: 042
     Dates: start: 20241201, end: 20241203
  5. CYCLOPHOSPHAMIDE [Suspect]
     Active Substance: CYCLOPHOSPHAMIDE
     Indication: Acute myeloid leukaemia
     Dosage: 2.580 G, QD
     Route: 042
     Dates: start: 20241207, end: 20241209

REACTIONS (8)
  - Cardiotoxicity [Not Recovered/Not Resolved]
  - Hepatic function abnormal [Recovering/Resolving]
  - Stomatitis [Recovering/Resolving]
  - Blood creatinine decreased [Recovering/Resolving]
  - Oropharyngeal pain [Recovering/Resolving]
  - Protein total decreased [Recovering/Resolving]
  - Product use in unapproved indication [Unknown]
  - Product administered to patient of inappropriate age [Unknown]

NARRATIVE: CASE EVENT DATE: 20241128
